FAERS Safety Report 7764826-9 (Version None)
Quarter: 2011Q3

REPORT INFORMATION
  Report Type: 
  Country: None (occurrence: None)
  Receive Date: 20110921
  Receipt Date: 20110914
  Transmission Date: 20111222
  Serious: Yes (Other)
  Sender: FDA-Public Use
  Company Number: US-PFIZER INC-2007096031

PATIENT
  Sex: Female
  Weight: 52.154 kg

DRUGS (7)
  1. XALATAN [Suspect]
     Indication: GLAUCOMA
     Dosage: 1 GTT, DAILY IN EACH EYE
     Route: 047
     Dates: start: 20060324, end: 20100201
  2. XALATAN [Suspect]
     Dosage: 1 GTT, DAILY IN EACH EYE (^QHS O.U.^)
     Dates: start: 20100222
  3. AZOPT [Suspect]
     Indication: INTRAOCULAR PRESSURE INCREASED
     Dosage: UNK TWICE DAILY ^O.U.^ BOTH EYES
     Route: 047
     Dates: start: 20110714, end: 20110729
  4. ACETYLSALICYLIC ACID [Concomitant]
     Indication: CARDIAC DISORDER
     Dosage: DAILY
  5. LISINOPRIL [Concomitant]
     Indication: BLOOD PRESSURE ABNORMAL
     Dosage: 10 MG, DAILY
     Route: 048
  6. ATENOLOL [Concomitant]
     Indication: BLOOD PRESSURE ABNORMAL
     Dosage: 25 MG, DAILY
  7. EVISTA [Concomitant]

REACTIONS (8)
  - ERYTHEMA OF EYELID [None]
  - DERMATITIS ALLERGIC [None]
  - EYE IRRITATION [None]
  - EYE PRURITUS [None]
  - PAIN [None]
  - INTRAOCULAR PRESSURE INCREASED [None]
  - EYELID IRRITATION [None]
  - SKIN BURNING SENSATION [None]
